FAERS Safety Report 24980097 (Version 2)
Quarter: 2025Q1

REPORT INFORMATION
  Report Type: Spontaneous
  Country: US (occurrence: US)
  Receive Date: 20250218
  Receipt Date: 20250224
  Transmission Date: 20250408
  Serious: Yes (Hospitalization)
  Sender: HIKMA
  Company Number: US-MLMSERVICE-20250203-PI390071-00229-1

PATIENT

DRUGS (12)
  1. MORPHINE [Suspect]
     Active Substance: MORPHINE
     Indication: Analgesic therapy
     Dosage: 0.2 MILLIGRAM, Q8H (0.04 ML BOLUS)
     Route: 037
  2. MORPHINE [Suspect]
     Active Substance: MORPHINE
     Indication: Cancer pain
     Dosage: 2 MILLIGRAM, QD, (VOLUME 0.4 ML)
     Route: 037
  3. APIXABAN [Concomitant]
     Active Substance: APIXABAN
     Indication: Product used for unknown indication
     Dosage: 5 MILLIGRAM, Q12H
     Route: 065
  4. BACLOFEN [Concomitant]
     Active Substance: BACLOFEN
     Indication: Product used for unknown indication
     Dosage: 10 MILLIGRAM, QD, NIGHTLY
     Route: 065
  5. BUPIVACAINE [Concomitant]
     Active Substance: BUPIVACAINE
     Indication: Analgesic therapy
     Dosage: 0.4 MILLIGRAM, Q8H, BOLUS
     Route: 037
  6. BUPIVACAINE [Concomitant]
     Active Substance: BUPIVACAINE
     Indication: Cancer pain
     Dosage: 4 MILLIGRAM, QD
     Route: 037
  7. CITALOPRAM [Concomitant]
     Active Substance: CITALOPRAM
     Indication: Product used for unknown indication
     Dosage: 40 MILLIGRAM, QD
     Route: 065
  8. LORAZEPAM [Concomitant]
     Active Substance: LORAZEPAM
     Indication: Product used for unknown indication
     Dosage: 0.5 MILLIGRAM, QD, AS NEEDED
     Route: 065
  9. METHYLPHENIDATE [Concomitant]
     Active Substance: METHYLPHENIDATE
     Indication: Product used for unknown indication
     Dosage: 10 MILLIGRAM, QD
     Route: 065
  10. ONDANSETRON [Concomitant]
     Active Substance: ONDANSETRON
     Indication: Product used for unknown indication
     Route: 065
  11. ZICONOTIDE [Concomitant]
     Active Substance: ZICONOTIDE
     Indication: Analgesic therapy
     Dosage: 0.04 MICROGRAM, Q8H, BOLUS
     Route: 037
  12. ZICONOTIDE [Concomitant]
     Active Substance: ZICONOTIDE
     Indication: Cancer pain
     Dosage: 0.4 MICROGRAM, QD
     Route: 037

REACTIONS (10)
  - Akathisia [Recovered/Resolved]
  - Sedation [Recovered/Resolved]
  - Drug withdrawal syndrome [Recovered/Resolved]
  - Pruritus [Unknown]
  - Altered state of consciousness [Recovered/Resolved]
  - Confusional state [Recovered/Resolved]
  - Anxiety [Recovered/Resolved]
  - Nausea [Recovered/Resolved]
  - Vomiting [Recovered/Resolved]
  - Product dose omission issue [Recovered/Resolved]
